FAERS Safety Report 15337486 (Version 1)
Quarter: 2018Q3

REPORT INFORMATION
  Report Type: Spontaneous
  Country: US (occurrence: US)
  Receive Date: 20180831
  Receipt Date: 20180831
  Transmission Date: 20181010
  Serious: No
  Sender: FDA-Public Use
  Company Number: US-PFIZER INC-2018351781

PATIENT
  Age: 21 Year
  Sex: Female

DRUGS (1)
  1. DEPO?PROVERA [Suspect]
     Active Substance: MEDROXYPROGESTERONE ACETATE
     Indication: CONTRACEPTION
     Dosage: UNK UNK, SINGLE
     Dates: start: 2014

REACTIONS (4)
  - Weight increased [Unknown]
  - Acne cystic [Not Recovered/Not Resolved]
  - Blood testosterone increased [Unknown]
  - Skin disorder [Unknown]

NARRATIVE: CASE EVENT DATE: 2014
